FAERS Safety Report 9306591 (Version 1)
Quarter: 2013Q2

REPORT INFORMATION
  Report Type: Spontaneous
  Country: US (occurrence: None)
  Receive Date: 20130523
  Receipt Date: 20130523
  Transmission Date: 20140414
  Serious: Yes (Other)
  Sender: FDA-Public Use
  Company Number: None

PATIENT
  Age: 69 Year
  Sex: Female
  Weight: 97.07 kg

DRUGS (1)
  1. METHYLPREDNISOLONE [Suspect]
     Indication: BURSITIS
     Dosage: 80 MG  ONCE  PERIARTICULAR
     Route: 052
     Dates: start: 20130221, end: 20130221

REACTIONS (1)
  - Injection site swelling [None]
